FAERS Safety Report 14278526 (Version 1)
Quarter: 2017Q4

REPORT INFORMATION
  Report Type: Report from Study
  Country: RU (occurrence: RU)
  Receive Date: 20171212
  Receipt Date: 20171212
  Transmission Date: 20180321
  Serious: Yes (Death, Hospitalization, Other)
  Sender: FDA-Public Use
  Company Number: RU-MYLANLABS-2017M1076526

PATIENT
  Age: 79 Year

DRUGS (4)
  1. ALTEPLASE. [Suspect]
     Active Substance: ALTEPLASE
     Indication: ANTICOAGULANT THERAPY
     Dosage: 10MG BOLUS VIA CENTRAL LINE AND 90MG CONTINUOUS INFUSION OVER 2 HOURS
     Route: 050
  2. HEPARIN [Suspect]
     Active Substance: HEPARIN SODIUM
     Indication: ANTICOAGULANT THERAPY
     Dosage: 1000IU/H TO REACH THE INCREASE OF APTT TO 1.5-2 TIMES FROM THE REFERENCE RANG
     Route: 065
  3. WARFARIN [Suspect]
     Active Substance: WARFARIN
     Indication: ANTICOAGULANT THERAPY
     Dosage: UNK
     Route: 065
  4. ALTEPLASE. [Suspect]
     Active Substance: ALTEPLASE
     Dosage: 90MG CONTINUOUS INFUSION OVER 2 HOURS
     Route: 050

REACTIONS (3)
  - Subdural haematoma [Fatal]
  - Haemorrhage intracranial [Fatal]
  - Cerebral haematoma [Fatal]
